FAERS Safety Report 18815051 (Version 1)
Quarter: 2021Q1

REPORT INFORMATION
  Report Type: Spontaneous
  Country: US (occurrence: US)
  Receive Date: 20210129
  Receipt Date: 20210129
  Transmission Date: 20210419
  Serious: Yes (Death)
  Sender: FDA-Public Use
  Company Number: None

PATIENT
  Age: 50 Year
  Sex: Male

DRUGS (2)
  1. GLEOSTINE [Suspect]
     Active Substance: LOMUSTINE
     Dosage: ?          OTHER FREQUENCY:ONCE;?
     Route: 048
  2. GLEOSTINE [Suspect]
     Active Substance: LOMUSTINE
     Dosage: ?          OTHER FREQUENCY:ONCE;?
     Route: 048

REACTIONS (1)
  - Death [None]

NARRATIVE: CASE EVENT DATE: 20200910
